FAERS Safety Report 8259917-2 (Version None)
Quarter: 2012Q2

REPORT INFORMATION
  Report Type: 
  Country: None (occurrence: None)
  Receive Date: 20120404
  Receipt Date: 20120329
  Transmission Date: 20120825
  Serious: Yes (Death, Other)
  Sender: FDA-Public Use
  Company Number: US-BAYER-201011351NA

PATIENT
  Age: 58 Year
  Sex: Male
  Weight: 82 kg

DRUGS (27)
  1. TRASYLOL [Suspect]
     Indication: AORTIC DISSECTION
     Dosage: LOADING DOSE: 100ML LOAD FOLLOWED BY 50CC/HR CONTINUOUS
     Dates: start: 20070322, end: 20070322
  2. CLONIDINE [Concomitant]
     Dosage: 0.3 MG, TID
     Route: 048
  3. NORVASC [Concomitant]
     Route: 048
  4. PROTAMINE SULFATE [Concomitant]
     Dosage: UNK
     Dates: start: 20070322, end: 20070322
  5. AMIODARONE HCL [Concomitant]
     Dosage: UNK
     Dates: start: 20070322, end: 20070322
  6. HYDRALAZINE HCL [Concomitant]
     Dosage: 100 MG, TID
  7. TOPROL-XL [Concomitant]
     Dosage: 100 MG, QD
     Route: 048
  8. VICODIN [Concomitant]
     Route: 048
  9. HEPARIN [Concomitant]
     Dosage: UNK
     Dates: start: 20070322, end: 20070322
  10. ESMOLOL HCL [Concomitant]
     Dosage: UNK
     Dates: start: 20070327, end: 20070327
  11. TRASYLOL [Suspect]
     Indication: CORONARY ARTERY BYPASS
     Dosage: INTIAL DOSE: 1ML, 200ML PRIME PUMP
     Dates: start: 20070322, end: 20070322
  12. TIAZAC [Concomitant]
     Dosage: 120 MG, QD
     Route: 048
  13. LABETALOL HCL [Concomitant]
  14. PEPCID [Concomitant]
  15. NEXIUM [Concomitant]
  16. PROTONIX [Concomitant]
  17. NICARDIPINE HCL [Concomitant]
     Dosage: UNK
     Dates: start: 20070322, end: 20070322
  18. MANNITOL [Concomitant]
     Dosage: UNK
     Dates: start: 20070322, end: 20070322
  19. LASIX [Concomitant]
     Dosage: 40 MG, UNK
     Route: 048
  20. ISOSORBIDE DINITRATE [Concomitant]
  21. CARDENE [Concomitant]
     Dosage: UNK
     Dates: start: 20070322, end: 20070322
  22. ASPIRIN [Concomitant]
     Dosage: 81 MG, QD
  23. VASOPRESSIN [Concomitant]
     Dosage: UNK
     Dates: start: 20070322, end: 20070322
  24. EPOGEN [Concomitant]
     Dosage: 10,000 UNITS EVERY OTHER DAY
  25. FENTANYL [Concomitant]
     Dosage: UNK
     Dates: start: 20070322, end: 20070322
  26. NITROGLYCERIN [Concomitant]
     Dosage: UNK
     Dates: start: 20070322, end: 20070322
  27. MILRINONE [Concomitant]
     Dosage: UNK
     Dates: start: 20070322, end: 20070322

REACTIONS (14)
  - ORGAN FAILURE [None]
  - RENAL FAILURE [None]
  - RENAL IMPAIRMENT [None]
  - UNEVALUABLE EVENT [None]
  - DEATH [None]
  - CEREBROVASCULAR ACCIDENT [None]
  - RENAL INJURY [None]
  - CARDIAC DISORDER [None]
  - ANHEDONIA [None]
  - FEAR [None]
  - ANXIETY [None]
  - PAIN [None]
  - DEPRESSION [None]
  - INJURY [None]
